FAERS Safety Report 20701480 (Version 1)
Quarter: 2022Q2

REPORT INFORMATION
  Report Type: Spontaneous
  Country: BE (occurrence: BE)
  Receive Date: 20220412
  Receipt Date: 20220412
  Transmission Date: 20220720
  Serious: Yes (Disabling)
  Sender: FDA-Public Use
  Company Number: BE-UCBSA-2022016504

PATIENT
  Age: 33 Year
  Sex: Female
  Weight: 55 kg

DRUGS (3)
  1. KEPPRA [Suspect]
     Active Substance: LEVETIRACETAM
     Indication: Epilepsy
     Dosage: 750 MILLIGRAM, 2X/DAY (BID)
     Dates: start: 202003
  2. LEVOTHYROXINE [Concomitant]
     Active Substance: LEVOTHYROXINE
     Indication: Product used for unknown indication
     Dosage: UNK
     Dates: start: 2019
  3. ZOLPIDEM [Concomitant]
     Active Substance: ZOLPIDEM TARTRATE
     Indication: Product used for unknown indication
     Dosage: UNK
     Dates: start: 2019

REACTIONS (12)
  - Personality disorder [Recovered/Resolved with Sequelae]
  - Mental disorder [Recovered/Resolved with Sequelae]
  - Behaviour disorder [Unknown]
  - Disinhibition [Unknown]
  - Thinking abnormal [Unknown]
  - Panic attack [Unknown]
  - Affect lability [Unknown]
  - Anxiety [Unknown]
  - Aggression [Unknown]
  - Insomnia [Unknown]
  - Mood swings [Unknown]
  - Maternal exposure during pregnancy [Unknown]

NARRATIVE: CASE EVENT DATE: 20200301
